FAERS Safety Report 9736607 (Version 1)
Quarter: 2013Q4

REPORT INFORMATION
  Report Type: Spontaneous
  Country: US (occurrence: US)
  Receive Date: 20131206
  Receipt Date: 20131206
  Transmission Date: 20140711
  Serious: No
  Sender: FDA-Public Use
  Company Number: US-BIOGENIDEC-2013BI098480

PATIENT
  Age: 68 Year
  Sex: Male

DRUGS (9)
  1. TECFIDERA [Suspect]
     Indication: PRODUCT USED FOR UNKNOWN INDICATION
     Route: 048
  2. LEVOTHYROXIN [Concomitant]
  3. REFRESH OPTI DROPS [Concomitant]
  4. METOPROLOL [Concomitant]
  5. LISINOPRIL [Concomitant]
  6. ASPIRIN [Concomitant]
  7. CIALIS [Concomitant]
  8. AMANTADINE [Concomitant]
  9. CENTRUM SILVER [Concomitant]

REACTIONS (1)
  - Paraesthesia [Unknown]
